FAERS Safety Report 5832232-X (Version None)
Quarter: 2008Q3

REPORT INFORMATION
  Report Type: 
  Country: None (occurrence: None)
  Receive Date: 20080804
  Receipt Date: 20080730
  Transmission Date: 20090109
  Serious: Yes (Life-Threatening, Hospitalization, Other)
  Sender: FDA-Public Use
  Company Number: US-JNJFOC-20070505652

PATIENT
  Sex: Female
  Weight: 55.79 kg

DRUGS (20)
  1. TMC125 [Suspect]
     Route: 048
  2. TMC125 [Suspect]
     Indication: HIV INFECTION
     Dosage: TEMPORARILY STOPPED
     Route: 048
  3. PREZISTA [Suspect]
     Indication: HIV INFECTION
     Dosage: TEMPORARILY STOPPED
     Route: 048
  4. NORVIR [Suspect]
     Indication: HIV INFECTION
     Route: 048
  5. TRUVADA [Concomitant]
     Indication: HIV INFECTION
     Route: 048
  6. MK-0518 [Concomitant]
     Indication: HIV INFECTION
     Route: 048
  7. DILTIAZEM HCL [Concomitant]
     Route: 065
  8. FLUCONAZOLE [Concomitant]
     Route: 065
  9. METOPROLOL [Concomitant]
     Route: 065
  10. HYDROCHLOROTHIAZIDE [Concomitant]
     Route: 065
  11. DESLORATIDINE [Concomitant]
     Route: 065
  12. TRIMETH-SULFA DS [Concomitant]
     Route: 065
  13. ESCITALOPRAM [Concomitant]
     Route: 065
  14. ACYCLOVIR [Concomitant]
     Route: 065
  15. AZITHROMYCIN [Concomitant]
     Route: 065
  16. LEVOTHYROXINE SODIUM [Concomitant]
     Route: 065
  17. FUROSEMIDE [Concomitant]
     Route: 065
  18. FERROUS SULFATE TAB [Concomitant]
     Route: 065
  19. QUININE SULFATE [Concomitant]
     Route: 065
  20. LISINOPRIL [Concomitant]
     Route: 065

REACTIONS (3)
  - BRADYCARDIA [None]
  - LACTIC ACIDOSIS [None]
  - RENAL FAILURE ACUTE [None]
